FAERS Safety Report 6670943-7 (Version None)
Quarter: 2010Q2

REPORT INFORMATION
  Report Type: 
  Country: None (occurrence: None)
  Receive Date: 20100406
  Receipt Date: 20100406
  Transmission Date: 20101027
  Serious: No
  Sender: FDA-Public Use
  Company Number: None

PATIENT
  Sex: Male
  Weight: 34.4 kg

DRUGS (10)
  1. PEG-L ASPARAGINASE (PEGASPARGASE, ONCOSPAR) [Suspect]
     Dosage: 82.7 IU
     Dates: end: 20100401
  2. VINCRISTINE SULFATE [Suspect]
     Dosage: 1.68 MG
     Dates: end: 20100401
  3. CYCLOPHOSPHAMIDE [Suspect]
     Dosage: 1120 MG
     Dates: end: 20100319
  4. CYTARABINE [Suspect]
     Dosage: 672  MG
     Dates: end: 20100331
  5. MERCAPTOPURINE [Suspect]
     Dosage: 36 MG
     Dates: end: 20100401
  6. METHOTREXATE [Suspect]
     Dosage: 36 MG
     Dates: end: 20100401
  7. BACTRIM [Concomitant]
  8. FENTANYL-100 [Concomitant]
  9. VERSED [Concomitant]
  10. ZANTAC [Suspect]

REACTIONS (2)
  - INFUSION RELATED REACTION [None]
  - URTICARIA [None]
